FAERS Safety Report 7280195-5 (Version None)
Quarter: 2011Q1

REPORT INFORMATION
  Report Type: 
  Country: None (occurrence: None)
  Receive Date: 20110208
  Receipt Date: 20110201
  Transmission Date: 20110831
  Serious: Yes (Other)
  Sender: FDA-Public Use
  Company Number: SE-AMGEN-SWESP2010005421

PATIENT
  Age: 48 Year
  Sex: Female

DRUGS (6)
  1. ENBREL [Suspect]
     Dosage: UNK
     Dates: start: 20101103
  2. ENBREL [Suspect]
     Indication: RHEUMATOID ARTHRITIS
     Dosage: 25 MG, 2X/WEEK
     Route: 058
     Dates: start: 19991201, end: 20050101
  3. ENBREL [Suspect]
     Dosage: 50 MG, WEEKLY
     Dates: start: 20050101, end: 20101001
  4. METHOTREXATE [Concomitant]
     Dosage: 15 MG, WEEKLY
     Dates: start: 19970101
  5. CORTISONE [Suspect]
  6. CALCICHEW-D3 [Concomitant]
     Dosage: 500 MG, 2X/DAY
     Dates: start: 20080101

REACTIONS (3)
  - SYSTEMIC LUPUS ERYTHEMATOSUS [None]
  - RHEUMATOID ARTHRITIS [None]
  - DRUG INEFFECTIVE [None]
